FAERS Safety Report 4346088-8 (Version None)
Quarter: 2004Q2

REPORT INFORMATION
  Report Type: 
  Country: None (occurrence: None)
  Receive Date: 20040421
  Receipt Date: 20040413
  Transmission Date: 20050107
  Serious: Yes (Hospitalization, Other)
  Sender: FDA-Public Use
  Company Number: 2004200247US

PATIENT
  Sex: Female

DRUGS (3)
  1. DETROL LA [Suspect]
     Dosage: QD, ORAL
     Route: 048
     Dates: start: 20040202, end: 20040302
  2. ZELNORM [Concomitant]
  3. PREVACID [Concomitant]

REACTIONS (2)
  - ABDOMINAL PAIN [None]
  - GALLBLADDER DISORDER [None]
